FAERS Safety Report 7352445-8 (Version None)
Quarter: 2011Q1

REPORT INFORMATION
  Report Type: 
  Country: None (occurrence: None)
  Receive Date: 20110315
  Receipt Date: 20110103
  Transmission Date: 20110831
  Serious: No
  Sender: FDA-Public Use
  Company Number: US-B.I. PHARMACEUTICALS,INC./RIDGEFIELD-2011-BP-04352BP

PATIENT
  Sex: Female

DRUGS (1)
  1. PRADAXA [Suspect]
     Dates: start: 20101129

REACTIONS (7)
  - HAEMOPTYSIS [None]
  - NERVOUSNESS [None]
  - BACK PAIN [None]
  - MUSCULOSKELETAL CHEST PAIN [None]
  - WHEEZING [None]
  - MALAISE [None]
  - INCREASED TENDENCY TO BRUISE [None]
